FAERS Safety Report 4392226-0 (Version None)
Quarter: 2004Q3

REPORT INFORMATION
  Report Type: 
  Country: None (occurrence: None)
  Receive Date: 20040702
  Receipt Date: 20040220
  Transmission Date: 20050211
  Serious: Yes (Other)
  Sender: FDA-Public Use
  Company Number: 2004UW02190

PATIENT
  Sex: Male

DRUGS (3)
  1. CRESTOR [Suspect]
     Indication: BLOOD CHOLESTEROL DECREASED
  2. CRESTOR [Suspect]
     Indication: BLOOD TRIGLYCERIDES DECREASED
  3. LESCOL [Concomitant]

REACTIONS (3)
  - PRURITUS GENERALISED [None]
  - RASH [None]
  - VISION BLURRED [None]
